FAERS Safety Report 8555652-1 (Version None)
Quarter: 2012Q3

REPORT INFORMATION
  Report Type: 
  Country: None (occurrence: None)
  Receive Date: 20120801
  Receipt Date: 20120209
  Transmission Date: 20120928
  Serious: No
  Sender: FDA-Public Use
  Company Number: US-ASTRAZENECA-2010SE11922

PATIENT
  Age: 59 Year
  Sex: Male

DRUGS (2)
  1. SEROQUEL [Suspect]
     Indication: BIPOLAR DISORDER
     Route: 048
  2. SYMBICORT [Suspect]
     Route: 055

REACTIONS (3)
  - SOMNOLENCE [None]
  - NASOPHARYNGITIS [None]
  - INSOMNIA [None]
